FAERS Safety Report 5622721-5 (Version None)
Quarter: 2008Q1

REPORT INFORMATION
  Report Type: 
  Country: None (occurrence: None)
  Receive Date: 20080212
  Receipt Date: 20080118
  Transmission Date: 20080703
  Serious: No
  Sender: FDA-Public Use
  Company Number: US-BOEHRINGER INGELHEIM GMBH, GERMANY-2008-BP-00022BP

PATIENT
  Sex: Female

DRUGS (4)
  1. ATROVENT HFA [Suspect]
     Indication: CHRONIC OBSTRUCTIVE PULMONARY DISEASE
     Route: 055
     Dates: start: 20071110
  2. ATROVENT HFA [Suspect]
     Indication: EMPHYSEMA
  3. LORATADINE [Concomitant]
     Indication: NASAL CONGESTION
  4. AVASTIN [Concomitant]
     Indication: MACULAR DEGENERATION
     Route: 031

REACTIONS (4)
  - BLOOD URIC ACID INCREASED [None]
  - ERYTHEMA [None]
  - OEDEMA PERIPHERAL [None]
  - PAIN IN EXTREMITY [None]
